FAERS Safety Report 16154652 (Version 1)
Quarter: 2019Q2

REPORT INFORMATION
  Report Type: Spontaneous
  Country: US (occurrence: US)
  Receive Date: 20190403
  Receipt Date: 20190403
  Transmission Date: 20190711
  Serious: Yes (Life-Threatening, Hospitalization, Other)
  Sender: FDA-Public Use
  Company Number: US-ELI_LILLY_AND_COMPANY-US201903016144

PATIENT
  Age: 71 Year
  Sex: Female
  Weight: 97 kg

DRUGS (4)
  1. VERAPAMIL [Concomitant]
     Active Substance: VERAPAMIL HYDROCHLORIDE
     Indication: PRODUCT USED FOR UNKNOWN INDICATION
     Dosage: UNK, UNKNOWN
     Route: 065
  2. HCTZ [Concomitant]
     Active Substance: HYDROCHLOROTHIAZIDE
     Indication: PRODUCT USED FOR UNKNOWN INDICATION
     Dosage: UNK, UNKNOWN
     Route: 065
  3. LARTRUVO [Suspect]
     Active Substance: OLARATUMAB
     Indication: LEIOMYOSARCOMA
     Dosage: 1470 MG, SINGLE
     Route: 042
     Dates: start: 20181010, end: 20181010
  4. DOXORUBICIN [Suspect]
     Active Substance: DOXORUBICIN
     Indication: LEIOMYOSARCOMA
     Dosage: UNK, UNKNOWN
     Route: 065

REACTIONS (5)
  - Acute respiratory failure [Recovered/Resolved]
  - Anaphylactic reaction [Recovered/Resolved]
  - Acute myocardial infarction [Recovered/Resolved]
  - Cardiac arrest [Recovered/Resolved]
  - Infusion related reaction [Recovered/Resolved]

NARRATIVE: CASE EVENT DATE: 20181010
